FAERS Safety Report 9127537 (Version 1)
Quarter: 2013Q1

REPORT INFORMATION
  Report Type: Spontaneous
  Country: US (occurrence: US)
  Receive Date: 20130228
  Receipt Date: 20130228
  Transmission Date: 20140127
  Serious: No
  Sender: FDA-Public Use
  Company Number: US-GLAXOSMITHKLINE-A0982697A

PATIENT
  Age: 54 Year
  Sex: Male

DRUGS (5)
  1. LAMICTAL [Suspect]
     Indication: NIGHTMARE
     Dosage: 100MG TWICE PER DAY
     Route: 048
     Dates: start: 201110
  2. COUMADIN [Concomitant]
  3. LASIX [Concomitant]
  4. WELLBUTRIN [Concomitant]
  5. DESYREL [Concomitant]

REACTIONS (2)
  - Cough [Recovered/Resolved]
  - Sneezing [Unknown]
